FAERS Safety Report 7547719-1 (Version None)
Quarter: 2011Q2

REPORT INFORMATION
  Report Type: 
  Country: None (occurrence: None)
  Receive Date: 20110614
  Receipt Date: 20110601
  Transmission Date: 20111010
  Serious: Yes (Other)
  Sender: FDA-Public Use
  Company Number: NL-AMGEN-NLDSP2011024303

PATIENT
  Age: 60 Year
  Sex: Female
  Weight: 62 kg

DRUGS (4)
  1. ENBREL [Suspect]
     Indication: PRODUCT USED FOR UNKNOWN INDICATION
     Dosage: UNK
     Dates: start: 20100801
  2. INDOCIN [Concomitant]
     Dosage: UNK
  3. PREDNISONE [Concomitant]
     Dosage: UNK
  4. MTX                                /00113802/ [Concomitant]
     Dosage: UNK

REACTIONS (15)
  - NECK PAIN [None]
  - EYE PRURITUS [None]
  - URINARY TRACT INFECTION [None]
  - SENSATION OF HEAVINESS [None]
  - DIZZINESS [None]
  - BLADDER DISORDER [None]
  - MULTIPLE SCLEROSIS [None]
  - TINNITUS [None]
  - PYREXIA [None]
  - LOCALISED OEDEMA [None]
  - ABDOMINAL INFECTION [None]
  - DYSPNOEA [None]
  - FATIGUE [None]
  - HEART VALVE INCOMPETENCE [None]
  - VISUAL IMPAIRMENT [None]
